FAERS Safety Report 12084244 (Version 1)
Quarter: 2016Q1

REPORT INFORMATION
  Report Type: Spontaneous
  Country: US (occurrence: None)
  Receive Date: 20160216
  Receipt Date: 20160216
  Transmission Date: 20160526
  Serious: Yes (Disabling)
  Sender: FDA-Public Use
  Company Number: None

PATIENT
  Age: 36 Year
  Sex: Female
  Weight: 56.25 kg

DRUGS (4)
  1. PROBIOTIC [Concomitant]
     Active Substance: PROBIOTICS NOS
  2. SYNTHROID [Concomitant]
     Active Substance: LEVOTHYROXINE SODIUM
  3. VIT. D3 [Concomitant]
  4. ESCITALOPRAM [Suspect]
     Active Substance: ESCITALOPRAM OXALATE
     Indication: DEPRESSION
     Dosage: 1 PILL ONCE DAILY  TAKEN BY MOUTH
     Route: 048
     Dates: start: 20160212, end: 20160214

REACTIONS (6)
  - Headache [None]
  - Panic attack [None]
  - Nausea [None]
  - Depression [None]
  - Eye irritation [None]
  - Product substitution issue [None]

NARRATIVE: CASE EVENT DATE: 20160212
